FAERS Safety Report 9979768 (Version 1)
Quarter: 2014Q1

REPORT INFORMATION
  Report Type: Report from Study
  Country: US (occurrence: US)
  Receive Date: 20140306
  Receipt Date: 20140306
  Transmission Date: 20141002
  Serious: Yes (Other)
  Sender: FDA-Public Use
  Company Number: US-ABBVIE-13P-163-1170276-00

PATIENT
  Sex: Female
  Weight: 89.89 kg

DRUGS (30)
  1. HUMIRA [Suspect]
     Indication: RHEUMATOID ARTHRITIS
     Route: 058
     Dates: start: 200701, end: 2007
  2. HUMIRA [Suspect]
     Route: 058
     Dates: start: 2008
  3. METFORMIN [Concomitant]
     Indication: DIABETES MELLITUS
  4. METHOTREXATE [Concomitant]
     Indication: RHEUMATOID ARTHRITIS
  5. MOBIC [Concomitant]
     Indication: PAIN
  6. PLAQUENIL [Concomitant]
     Indication: RHEUMATOID ARTHRITIS
  7. DIOVAN [Concomitant]
     Indication: HYPERTENSION
  8. AMLODIPINE [Concomitant]
     Indication: RAYNAUD^S PHENOMENON
  9. ZOCOR [Concomitant]
     Indication: BLOOD CHOLESTEROL INCREASED
  10. VERAPAMIL [Concomitant]
     Indication: HEART RATE IRREGULAR
  11. FOLIC ACID [Concomitant]
     Indication: PRODUCT USED FOR UNKNOWN INDICATION
  12. NEXIUM [Concomitant]
     Indication: GASTROOESOPHAGEAL REFLUX DISEASE
  13. TOPAMAX [Concomitant]
     Indication: RESTLESS LEGS SYNDROME
  14. PILOCARPINE [Concomitant]
     Indication: DRY MOUTH
  15. ASPIRIN [Concomitant]
     Indication: PRODUCT USED FOR UNKNOWN INDICATION
  16. SINGULAIR [Concomitant]
     Indication: ASTHMA
  17. NASONEX [Concomitant]
     Indication: PRODUCT USED FOR UNKNOWN INDICATION
  18. XOPENEX HFA [Concomitant]
     Indication: ASTHMA
  19. XOPENEX [Concomitant]
     Indication: ASTHMA
  20. ADVAIR [Concomitant]
     Indication: ASTHMA
  21. GABITRIL [Concomitant]
     Indication: PAIN
  22. FLEXERIL [Concomitant]
     Indication: PAIN
  23. PERCOCET [Concomitant]
     Indication: PAIN
  24. OXYCONTIN [Concomitant]
     Indication: PAIN
  25. AMITRIPTYLINE [Concomitant]
     Indication: SLEEP DISORDER
  26. MULTIVITAMIN [Concomitant]
     Indication: VITAMIN SUPPLEMENTATION
  27. PRESCRIPTION PAIN CREAM [Concomitant]
     Indication: PAIN
  28. VITAMIN C [Concomitant]
     Indication: VITAMIN SUPPLEMENTATION
  29. CALCIUM [Concomitant]
     Indication: MINERAL SUPPLEMENTATION
  30. GLUCOSAMINE [Concomitant]
     Indication: ARTHRALGIA

REACTIONS (3)
  - Breast cancer [Recovered/Resolved]
  - Arthralgia [Not Recovered/Not Resolved]
  - Fibromyalgia [Not Recovered/Not Resolved]
